FAERS Safety Report 25406775 (Version 1)
Quarter: 2025Q2

REPORT INFORMATION
  Report Type: Spontaneous
  Country: US (occurrence: US)
  Receive Date: 20250606
  Receipt Date: 20250606
  Transmission Date: 20250717
  Serious: No
  Sender: Kenvue
  Company Number: US-KENVUE-20250505595

PATIENT
  Sex: Female

DRUGS (7)
  1. IMODIUM [Suspect]
     Active Substance: LOPERAMIDE HYDROCHLORIDE
     Indication: Diarrhoea
     Route: 065
  2. OFEV [Concomitant]
     Active Substance: NINTEDANIB
     Indication: Idiopathic pulmonary fibrosis
     Dosage: 100 MILLIGRAM, TWICE A DAY
     Route: 048
     Dates: start: 202403
  3. OFEV [Concomitant]
     Active Substance: NINTEDANIB
     Dosage: 100 MILLIGRAM, TWICE A DAY
     Route: 048
     Dates: start: 202403
  4. OFEV [Concomitant]
     Active Substance: NINTEDANIB
     Dosage: 100 MILLIGRAM, TWICE A DAY
     Route: 048
     Dates: start: 202403
  5. ZOFRAN [Concomitant]
     Active Substance: ONDANSETRON HYDROCHLORIDE
     Indication: Nausea
     Route: 065
  6. Vaprino [Concomitant]
     Indication: Diarrhoea
     Route: 065
  7. Ensure protein shake [Concomitant]
     Indication: Decreased appetite
     Route: 065

REACTIONS (1)
  - Constipation [Unknown]
